FAERS Safety Report 25941287 (Version 1)
Quarter: 2025Q4

REPORT INFORMATION
  Report Type: Spontaneous
  Country: US (occurrence: US)
  Receive Date: 20251020
  Receipt Date: 20251020
  Transmission Date: 20260117
  Serious: No
  Sender: MYLAN
  Company Number: US-MYLANLABS-2025M1086365

PATIENT
  Age: 59 Year
  Sex: Male
  Weight: 77.56 kg

DRUGS (16)
  1. SCOPOLAMINE TRANSDERMAL SYSTEM [Suspect]
     Active Substance: SCOPOLAMINE
     Indication: Vertigo
     Dosage: 1 MILLIGRAM, Q3D (ONE EVERY 3 DAYS)
     Dates: start: 202510
  2. SCOPOLAMINE TRANSDERMAL SYSTEM [Suspect]
     Active Substance: SCOPOLAMINE
     Dosage: 1 MILLIGRAM, Q3D (ONE EVERY 3 DAYS)
     Route: 062
     Dates: start: 202510
  3. SCOPOLAMINE TRANSDERMAL SYSTEM [Suspect]
     Active Substance: SCOPOLAMINE
     Dosage: 1 MILLIGRAM, Q3D (ONE EVERY 3 DAYS)
     Route: 062
     Dates: start: 202510
  4. SCOPOLAMINE TRANSDERMAL SYSTEM [Suspect]
     Active Substance: SCOPOLAMINE
     Dosage: 1 MILLIGRAM, Q3D (ONE EVERY 3 DAYS)
     Dates: start: 202510
  5. PROMETHAZINE [Concomitant]
     Active Substance: PROMETHAZINE HYDROCHLORIDE
     Dosage: UNK
  6. PROMETHAZINE [Concomitant]
     Active Substance: PROMETHAZINE HYDROCHLORIDE
     Dosage: UNK
     Route: 065
  7. PROMETHAZINE [Concomitant]
     Active Substance: PROMETHAZINE HYDROCHLORIDE
     Dosage: UNK
     Route: 065
  8. PROMETHAZINE [Concomitant]
     Active Substance: PROMETHAZINE HYDROCHLORIDE
     Dosage: UNK
  9. LOFEXIDINE [Concomitant]
     Active Substance: LOFEXIDINE HYDROCHLORIDE
     Dosage: UNK, AM (EVERY MORNING)
  10. LOFEXIDINE [Concomitant]
     Active Substance: LOFEXIDINE HYDROCHLORIDE
     Dosage: UNK, AM (EVERY MORNING)
     Route: 065
  11. LOFEXIDINE [Concomitant]
     Active Substance: LOFEXIDINE HYDROCHLORIDE
     Dosage: UNK, AM (EVERY MORNING)
     Route: 065
  12. LOFEXIDINE [Concomitant]
     Active Substance: LOFEXIDINE HYDROCHLORIDE
     Dosage: UNK, AM (EVERY MORNING)
  13. Tranazole [Concomitant]
     Dosage: UNK, QW (WEEKLY)
  14. Tranazole [Concomitant]
     Dosage: UNK, QW (WEEKLY)
     Route: 065
  15. Tranazole [Concomitant]
     Dosage: UNK, QW (WEEKLY)
     Route: 065
  16. Tranazole [Concomitant]
     Dosage: UNK, QW (WEEKLY)

REACTIONS (2)
  - Product adhesion issue [Unknown]
  - Off label use [Unknown]

NARRATIVE: CASE EVENT DATE: 20251001
